FAERS Safety Report 6293324-7 (Version None)
Quarter: 2009Q3

REPORT INFORMATION
  Report Type: 
  Country: None (occurrence: None)
  Receive Date: 20090731
  Receipt Date: 20090723
  Transmission Date: 20100115
  Serious: Yes (Hospitalization, Other)
  Sender: FDA-Public Use
  Company Number: PHHY2009BR30757

PATIENT
  Sex: Female
  Weight: 80 kg

DRUGS (7)
  1. EXELON [Suspect]
     Indication: DEMENTIA ALZHEIMER'S TYPE
     Route: 048
  2. OXCARBAZEPINE [Concomitant]
     Indication: SYNCOPE
     Dosage: 600 MG TWICE DAILY
     Route: 048
  3. DEPAKOTE [Concomitant]
     Dosage: 500 MG 4 TABLETS/DAY
     Route: 048
  4. RIVOTRIL [Concomitant]
     Indication: DEPRESSION
     Dosage: 20 DRP, QD
     Route: 048
  5. EBIXA [Concomitant]
     Dosage: 10 MG 2 TABLETS/DAY
     Route: 048
  6. RADIOTHERAPY [Concomitant]
  7. TRILEPTAL [Concomitant]

REACTIONS (5)
  - BREAST CANCER [None]
  - DEMENTIA [None]
  - DYSKINESIA [None]
  - NERVOUS SYSTEM DISORDER [None]
  - TUMOUR EXCISION [None]
